FAERS Safety Report 16990756 (Version 1)
Quarter: 2019Q4

REPORT INFORMATION
  Report Type: Report from Study
  Country: CA (occurrence: CA)
  Receive Date: 20191104
  Receipt Date: 20191104
  Transmission Date: 20200122
  Serious: Yes (Hospitalization, Other)
  Sender: FDA-Public Use
  Company Number: CA-009507513-1803CAN010613

PATIENT
  Age: 32 Year
  Sex: Female
  Weight: 123.5 kg

DRUGS (12)
  1. PEMBROLIZUMAB. [Suspect]
     Active Substance: PEMBROLIZUMAB
     Dosage: 200 MILLIGRAM, Q3W (STRENGTH: 2MG/KG)
     Route: 042
  2. PEMBROLIZUMAB. [Suspect]
     Active Substance: PEMBROLIZUMAB
     Dosage: 200 MILLIGRAM, Q3W (STRENGTH: 2MG/KG)
     Route: 042
  3. PEMBROLIZUMAB. [Suspect]
     Active Substance: PEMBROLIZUMAB
     Indication: HODGKIN^S DISEASE
     Dosage: 200 MG, Q3W (STRENGTH: 2MG/KG)
     Route: 042
     Dates: start: 20180322
  4. PEMBROLIZUMAB. [Suspect]
     Active Substance: PEMBROLIZUMAB
     Dosage: 200 MG, Q3W (STRENGTH: 2MG/KG)
     Route: 042
     Dates: start: 2018
  5. PEMBROLIZUMAB. [Suspect]
     Active Substance: PEMBROLIZUMAB
     Dosage: 200 MG, Q3W (STRENGTH: 2MG/KG)
     Route: 042
     Dates: start: 2018
  6. PEMBROLIZUMAB. [Suspect]
     Active Substance: PEMBROLIZUMAB
     Dosage: 200 MILLIGRAM, Q3W (STRENGTH: 2MG/KG)
     Route: 042
     Dates: start: 20190605
  7. PEMBROLIZUMAB. [Suspect]
     Active Substance: PEMBROLIZUMAB
     Dosage: 200 MG, Q3W (STRENGTH: 2MG/KG)
     Route: 042
     Dates: start: 201805
  8. PEMBROLIZUMAB. [Suspect]
     Active Substance: PEMBROLIZUMAB
     Dosage: 200 MG, Q3W (STRENGTH: 2MG/KG)
     Route: 042
     Dates: start: 20180322
  9. PEMBROLIZUMAB. [Suspect]
     Active Substance: PEMBROLIZUMAB
     Dosage: 200 MG, Q3W (STRENGTH: 2MG/KG)
     Route: 042
     Dates: start: 20180411, end: 2018
  10. PEMBROLIZUMAB. [Suspect]
     Active Substance: PEMBROLIZUMAB
     Dosage: 200 MG, Q3W (STRENGTH: 2MG/KG)
     Route: 042
     Dates: start: 201807
  11. PEMBROLIZUMAB. [Suspect]
     Active Substance: PEMBROLIZUMAB
     Dosage: 200 MILLIGRAM, Q3W (STRENGTH: 2MG/KG)
     Route: 042
     Dates: start: 2019, end: 2019
  12. PEMBROLIZUMAB. [Suspect]
     Active Substance: PEMBROLIZUMAB
     Dosage: 200 MG, Q3W (STRENGTH: 2MG/KG)
     Dates: start: 20180613

REACTIONS (65)
  - Insomnia [Recovered/Resolved]
  - Bacterial vaginosis [Recovered/Resolved]
  - Sleep disorder [Unknown]
  - Respiratory tract infection [Unknown]
  - Carpal tunnel syndrome [Unknown]
  - Malaise [Unknown]
  - Decreased appetite [Unknown]
  - Dyspnoea [Recovered/Resolved]
  - Crying [Not Recovered/Not Resolved]
  - Ear infection [Recovering/Resolving]
  - Pneumonia [Recovered/Resolved]
  - Mobility decreased [Unknown]
  - Dysphonia [Unknown]
  - Tension headache [Unknown]
  - Pyrexia [Unknown]
  - Rash [Unknown]
  - Lung disorder [Recovering/Resolving]
  - Abdominal pain upper [Recovered/Resolved]
  - Fatigue [Not Recovered/Not Resolved]
  - Acne [Recovering/Resolving]
  - Cognitive disorder [Recovered/Resolved]
  - Somnolence [Unknown]
  - Sinus pain [Unknown]
  - Increased appetite [Unknown]
  - Depression [Unknown]
  - Dysmenorrhoea [Not Recovered/Not Resolved]
  - Nasopharyngitis [Recovered/Resolved]
  - Blood pressure abnormal [Unknown]
  - Stress [Unknown]
  - Nasal congestion [Unknown]
  - Productive cough [Unknown]
  - Pruritus [Unknown]
  - Blood pressure abnormal [Unknown]
  - Abscess bacterial [Not Recovered/Not Resolved]
  - Anxiety [Not Recovered/Not Resolved]
  - Menometrorrhagia [Not Recovered/Not Resolved]
  - Feeling abnormal [Unknown]
  - Sinus congestion [Unknown]
  - Dehydration [Unknown]
  - Adverse event [Unknown]
  - Headache [Recovered/Resolved]
  - Fatigue [Recovered/Resolved]
  - Fatigue [Unknown]
  - Fatigue [Recovering/Resolving]
  - Dyspnoea [Unknown]
  - Agitation [Unknown]
  - Discomfort [Unknown]
  - Memory impairment [Unknown]
  - Poor quality sleep [Unknown]
  - Weight decreased [Unknown]
  - Pain [Unknown]
  - Pulse abnormal [Unknown]
  - Vein disorder [Unknown]
  - Gastroenteritis [Recovered/Resolved]
  - Nasopharyngitis [Recovered/Resolved]
  - Insomnia [Unknown]
  - Somnolence [Unknown]
  - Cough [Unknown]
  - Inappropriate schedule of product administration [Unknown]
  - Somnolence [Not Recovered/Not Resolved]
  - Pulmonary toxicity [Recovered/Resolved]
  - Dyspepsia [Unknown]
  - Vital functions abnormal [Unknown]
  - Nausea [Unknown]
  - Heart rate increased [Unknown]

NARRATIVE: CASE EVENT DATE: 2018
